FAERS Safety Report 19426321 (Version 1)
Quarter: 2021Q2

REPORT INFORMATION
  Report Type: Spontaneous
  Country: FR (occurrence: FR)
  Receive Date: 20210616
  Receipt Date: 20210616
  Transmission Date: 20210717
  Serious: Yes (Life-Threatening, Hospitalization, Disabling, Congenital Anomaly, Other)
  Sender: FDA-Public Use
  Company Number: FR-ABBVIE-10P-056-0682929-00

PATIENT
  Sex: Male

DRUGS (2)
  1. DEPAKINE [Suspect]
     Active Substance: VALPROATE SODIUM
     Indication: MATERNAL EXPOSURE TIMING UNSPECIFIED
     Route: 064
  2. SPECIAFOLDINE [Concomitant]
     Active Substance: FOLIC ACID
     Indication: PRODUCT USED FOR UNKNOWN INDICATION
     Dates: start: 20000519

REACTIONS (25)
  - Asthma [Unknown]
  - Hypotonia [Unknown]
  - Foetal exposure during pregnancy [Unknown]
  - Oropharyngeal discomfort [Unknown]
  - Motor dysfunction [Unknown]
  - Nystagmus [Unknown]
  - Speech disorder [Unknown]
  - Developmental delay [Unknown]
  - Ear disorder [Unknown]
  - Memory impairment [Unknown]
  - Cognitive disorder [Unknown]
  - Speech disorder developmental [Unknown]
  - Learning disorder [Unknown]
  - Dyspepsia [Unknown]
  - Periventricular leukomalacia [Unknown]
  - Foot deformity [Unknown]
  - Cerebral palsy [Not Recovered/Not Resolved]
  - Urinary incontinence [Unknown]
  - Nasal disorder [Unknown]
  - Hypermetropia [Unknown]
  - Fatigue [Unknown]
  - Strabismus [Unknown]
  - Emotional disorder [Unknown]
  - Limb asymmetry [Unknown]
  - Anxiety [Unknown]

NARRATIVE: CASE EVENT DATE: 2000
